FAERS Safety Report 8588538-7 (Version None)
Quarter: 2012Q3

REPORT INFORMATION
  Report Type: 
  Country: None (occurrence: None)
  Receive Date: 20120813
  Receipt Date: 20120719
  Transmission Date: 20120928
  Serious: No
  Sender: FDA-Public Use
  Company Number: US-JNJFOC-20120710254

PATIENT
  Sex: Female
  Weight: 68.04 kg

DRUGS (20)
  1. TRAMADOL HCL [Suspect]
     Indication: RHEUMATOID ARTHRITIS
     Dosage: 100MG/TABLET/50MG/EVERY 4-6 HOURS
     Route: 048
     Dates: start: 20070101
  2. METHOTREXATE [Suspect]
     Indication: INTERVERTEBRAL DISC DEGENERATION
     Dosage: 100MG/TABLET/50MG/EVERY 4-6 HOURS
     Route: 048
     Dates: start: 20120101, end: 20120101
  3. METHOTREXATE [Suspect]
     Indication: BACK PAIN
     Dosage: 100MG/TABLET/50MG/EVERY 4-6 HOURS
     Route: 048
     Dates: start: 20120101, end: 20120101
  4. PERCOCET [Suspect]
     Indication: BACK PAIN
     Dosage: 100MG/TABLET/50MG/EVERY 4-6 HOURS
     Route: 048
     Dates: start: 20120101, end: 20120101
  5. METHOTREXATE [Suspect]
     Indication: FIBROMYALGIA
     Dosage: 100MG/TABLET/50MG/EVERY 4-6 HOURS
     Route: 048
     Dates: start: 20120101, end: 20120101
  6. DURAGESIC-100 [Suspect]
     Indication: INTERVERTEBRAL DISC DEGENERATION
     Route: 062
     Dates: start: 20070101, end: 20120101
  7. DURAGESIC-100 [Suspect]
     Indication: BACK PAIN
     Route: 062
     Dates: start: 20070101, end: 20120101
  8. TRAMADOL HCL [Suspect]
     Indication: INTERVERTEBRAL DISC DEGENERATION
     Dosage: 100MG/TABLET/50MG/EVERY 4-6 HOURS
     Route: 048
     Dates: start: 20070101
  9. PERCOCET [Suspect]
     Indication: FIBROMYALGIA
     Dosage: 100MG/TABLET/50MG/EVERY 4-6 HOURS
     Route: 048
     Dates: start: 20120101, end: 20120101
  10. PERCOCET [Suspect]
     Indication: INTERVERTEBRAL DISC DEGENERATION
     Dosage: 100MG/TABLET/50MG/EVERY 4-6 HOURS
     Route: 048
     Dates: start: 20120101, end: 20120101
  11. OXYCODONE HYDROCHLORIDE [Suspect]
     Indication: RHEUMATOID ARTHRITIS
     Dosage: 100MG/TABLET/50MG/EVERY 4-6 HOURS
     Route: 048
     Dates: start: 20120101, end: 20120101
  12. OXYCODONE HYDROCHLORIDE (OXYCONTIN) [Suspect]
     Indication: FIBROMYALGIA
     Dosage: 100MG/TABLET/50MG/EVERY 4-6 HOURS
     Route: 048
     Dates: start: 20120101, end: 20120101
  13. PERCOCET [Suspect]
     Indication: RHEUMATOID ARTHRITIS
     Dosage: 100MG/TABLET/50MG/EVERY 4-6 HOURS
     Route: 048
     Dates: start: 20120101, end: 20120101
  14. METHOTREXATE [Suspect]
     Indication: RHEUMATOID ARTHRITIS
     Dosage: 100MG/TABLET/50MG/EVERY 4-6 HOURS
     Route: 048
     Dates: start: 20120101, end: 20120101
  15. DURAGESIC-100 [Suspect]
     Indication: FIBROMYALGIA
     Route: 062
     Dates: start: 20070101, end: 20120101
  16. OXYCODONE HCL [Suspect]
     Indication: INTERVERTEBRAL DISC DEGENERATION
     Dosage: 100MG/TABLET/50MG/EVERY 4-6 HOURS
     Route: 048
     Dates: start: 20120101, end: 20120101
  17. OXYCODONE HCL [Suspect]
     Indication: BACK PAIN
     Dosage: 100MG/TABLET/50MG/EVERY 4-6 HOURS
     Route: 048
     Dates: start: 20120101, end: 20120101
  18. DURAGESIC-100 [Suspect]
     Indication: RHEUMATOID ARTHRITIS
     Route: 062
     Dates: start: 20070101, end: 20120101
  19. TRAMADOL HCL [Suspect]
     Indication: FIBROMYALGIA
     Dosage: 100MG/TABLET/50MG/EVERY 4-6 HOURS
     Route: 048
     Dates: start: 20070101
  20. TRAMADOL HCL [Suspect]
     Indication: BACK PAIN
     Dosage: 100MG/TABLET/50MG/EVERY 4-6 HOURS
     Route: 048
     Dates: start: 20070101

REACTIONS (2)
  - DRUG INEFFECTIVE [None]
  - INAPPROPRIATE SCHEDULE OF DRUG ADMINISTRATION [None]
